FAERS Safety Report 19739229 (Version 1)
Quarter: 2021Q3

REPORT INFORMATION
  Report Type: Spontaneous
  Country: FR (occurrence: FR)
  Receive Date: 20210824
  Receipt Date: 20210824
  Transmission Date: 20211014
  Serious: Yes (Hospitalization)
  Sender: FDA-Public Use
  Company Number: FR-PFIZER INC-202101045109

PATIENT
  Age: 73 Year
  Sex: Male
  Weight: 106 kg

DRUGS (15)
  1. MEROPENEM. [Suspect]
     Active Substance: MEROPENEM
     Indication: INFECTION
     Dosage: 6 G, 1X/DAY
     Route: 042
     Dates: start: 20210521, end: 20210525
  2. HYDROCORTISONE. [Suspect]
     Active Substance: HYDROCORTISONE
     Dosage: 200 MG, 1X/DAY
     Route: 042
     Dates: start: 20210521, end: 20210521
  3. FOSFOMYCIN [Suspect]
     Active Substance: FOSFOMYCIN
     Dosage: 4 G, 3X/DAY
     Route: 042
     Dates: start: 20210521, end: 20210523
  4. ROVAMYCINE [SPIRAMYCIN] [Suspect]
     Active Substance: SPIRAMYCIN
     Indication: INFECTION
     Dosage: FREQ:8 H;1.5 MIU, Q8H
     Route: 042
     Dates: start: 20210521, end: 20210523
  5. METRONIDAZOLE. [Suspect]
     Active Substance: METRONIDAZOLE
     Indication: INFECTION
     Dosage: 1500 MG, 1X/DAY
     Route: 042
     Dates: start: 20210521, end: 20210523
  6. ACICLOVIR [Suspect]
     Active Substance: ACYCLOVIR
     Dosage: 3300 MG, 3X/DAY
     Route: 042
     Dates: start: 20210521, end: 20210523
  7. PANTOPRAZOLE [Concomitant]
     Active Substance: PANTOPRAZOLE
     Dosage: UNK
  8. VALACYCLOVIR [Suspect]
     Active Substance: VALACYCLOVIR HYDROCHLORIDE
     Indication: INFECTION
     Dosage: 3300 MG, 1X/DAY
     Route: 042
     Dates: start: 20210521, end: 20210523
  9. NORADRENALINE MYLAN [Suspect]
     Active Substance: NOREPINEPHRINE\NOREPINEPHRINE BITARTRATE
     Indication: HYPOTENSION
     Dosage: 20 MG, 1X/DAY
     Route: 042
     Dates: start: 20210521, end: 20210521
  10. LEVOTHYROX [Concomitant]
     Active Substance: LEVOTHYROXINE
     Dosage: UNK
  11. FUMAFER [Concomitant]
     Active Substance: FERROUS FUMARATE
     Dosage: UNK
  12. INSULIN [Concomitant]
     Active Substance: INSULIN NOS
     Dosage: UNK
  13. PARACETAMOL [Concomitant]
     Active Substance: ACETAMINOPHEN
     Dosage: UNK
  14. PHYTOMENADIONE [Suspect]
     Active Substance: PHYTONADIONE
     Dosage: 10 MG, 1X/DAY
     Route: 042
     Dates: start: 20210521, end: 20210521
  15. FLUCORTAC [Suspect]
     Active Substance: FLUDROCORTISONE ACETATE
     Indication: INFECTION
     Dosage: 50 UG, 1X/DAY
     Route: 048
     Dates: start: 20210521, end: 20210521

REACTIONS (2)
  - Epileptic encephalopathy [Recovered/Resolved]
  - Off label use [Unknown]

NARRATIVE: CASE EVENT DATE: 20210522
